FAERS Safety Report 6102977-5 (Version None)
Quarter: 2009Q1

REPORT INFORMATION
  Report Type: 
  Country: None (occurrence: None)
  Receive Date: 20090305
  Receipt Date: 20090223
  Transmission Date: 20090719
  Serious: Yes (Hospitalization)
  Sender: FDA-Public Use
  Company Number: PHHY2009IL06732

PATIENT
  Age: 67 Year
  Sex: Female

DRUGS (2)
  1. EXJADE [Suspect]
  2. DESFERAL [Suspect]

REACTIONS (3)
  - HYPOXIA [None]
  - OEDEMA PERIPHERAL [None]
  - PULMONARY HYPERTENSION [None]
